FAERS Safety Report 9316595 (Version 4)
Quarter: 2013Q3

REPORT INFORMATION
  Report Type: Report from Study
  Country: US (occurrence: US)
  Receive Date: 20130530
  Receipt Date: 20130703
  Transmission Date: 20140515
  Serious: Yes (Hospitalization)
  Sender: FDA-Public Use
  Company Number: US-JNJFOC-20130516456

PATIENT
  Age: 15 Year
  Sex: Female
  Weight: 46 kg

DRUGS (18)
  1. REMICADE [Suspect]
     Indication: CROHN^S DISEASE
     Route: 042
     Dates: start: 200802
  2. HUMIRA [Concomitant]
     Indication: PRODUCT USED FOR UNKNOWN INDICATION
     Route: 065
     Dates: start: 20110905
  3. 6-MERCAPTOPURINE [Concomitant]
     Route: 065
  4. ACIDOPHILUS [Concomitant]
     Route: 065
  5. VITAMIN B12 [Concomitant]
     Route: 065
  6. BENADRYL [Concomitant]
     Route: 065
  7. CLARITIN [Concomitant]
     Route: 065
  8. GLUCOSAMINE [Concomitant]
     Route: 065
  9. MIRALAX [Concomitant]
     Route: 065
  10. MULTIVITAMINS [Concomitant]
     Route: 065
  11. AMITRIPTYLINE [Concomitant]
     Route: 048
  12. NEXIUM [Concomitant]
     Route: 065
  13. GROWTH HORMONE [Concomitant]
     Route: 065
  14. ZOLOFT [Concomitant]
     Route: 065
  15. TRAMADOL [Concomitant]
     Route: 065
  16. ZOFRAN [Concomitant]
     Route: 065
  17. HYOSCYAMINE [Concomitant]
     Route: 065
  18. BENTYL [Concomitant]
     Route: 065

REACTIONS (1)
  - Irritable bowel syndrome [Recovered/Resolved with Sequelae]
